FAERS Safety Report 16208011 (Version 1)
Quarter: 2019Q2

REPORT INFORMATION
  Report Type: Report from Study
  Country: None (occurrence: BR)
  Receive Date: 20190417
  Receipt Date: 20190417
  Transmission Date: 20190711
  Serious: Yes (Hospitalization, Other)
  Sender: FDA-Public Use
  Company Number: BR-ABBVIE-19K-020-2741690-00

PATIENT
  Age: 82 Year
  Sex: Female
  Weight: 89 kg

DRUGS (6)
  1. HUMIRA [Suspect]
     Active Substance: ADALIMUMAB
     Route: 058
  2. SIMVASTATIN. [Concomitant]
     Active Substance: SIMVASTATIN
     Indication: BLOOD CHOLESTEROL
  3. HUMIRA [Suspect]
     Active Substance: ADALIMUMAB
     Indication: COLITIS ULCERATIVE
     Route: 058
  4. LOSARTAN. [Concomitant]
     Active Substance: LOSARTAN
     Indication: BLOOD PRESSURE MEASUREMENT
  5. HUMIRA [Suspect]
     Active Substance: ADALIMUMAB
     Indication: RHEUMATOID ARTHRITIS
     Route: 058
     Dates: start: 20120901
  6. ATENOLOL. [Concomitant]
     Active Substance: ATENOLOL
     Indication: CARDIAC DISORDER

REACTIONS (18)
  - Renal disorder [Recovered/Resolved]
  - Colitis ulcerative [Unknown]
  - Asthenia [Unknown]
  - Atelectasis [Unknown]
  - Pulmonary embolism [Unknown]
  - Weight increased [Unknown]
  - Somnolence [Not Recovered/Not Resolved]
  - Neck mass [Unknown]
  - Coronary artery disease [Unknown]
  - Gastrointestinal injury [Not Recovered/Not Resolved]
  - Pneumonitis [Unknown]
  - Diarrhoea [Recovered/Resolved]
  - Fatigue [Unknown]
  - Dehydration [Unknown]
  - Serum ferritin increased [Unknown]
  - Depression [Not Recovered/Not Resolved]
  - Fluid retention [Unknown]
  - Dermatitis allergic [Unknown]

NARRATIVE: CASE EVENT DATE: 201812
